FAERS Safety Report 11298461 (Version 1)
Quarter: 2015Q3

REPORT INFORMATION
  Report Type: Spontaneous
  Country: US (occurrence: US)
  Receive Date: 20150722
  Receipt Date: 20150722
  Transmission Date: 20151125
  Serious: Yes (Other)
  Sender: FDA-Public Use
  Company Number: US-ELI_LILLY_AND_COMPANY-US201111000729

PATIENT
  Age: 76 Year
  Sex: Male
  Weight: 78.01 kg

DRUGS (8)
  1. ATENOLOL. [Concomitant]
     Active Substance: ATENOLOL
  2. TYLENOL                                 /SCH/ [Concomitant]
  3. PREVACID [Concomitant]
     Active Substance: LANSOPRAZOLE
  4. CRESTOR [Concomitant]
     Active Substance: ROSUVASTATIN CALCIUM
  5. COUMADIN [Concomitant]
     Active Substance: WARFARIN SODIUM
  6. EFFIENT [Suspect]
     Active Substance: PRASUGREL HYDROCHLORIDE
     Indication: THROMBOSIS
     Dosage: 10 MG, QD
     Dates: start: 2010
  7. ZOCOR [Concomitant]
     Active Substance: SIMVASTATIN
  8. NIASPAN [Concomitant]
     Active Substance: NIACIN

REACTIONS (6)
  - Gastrointestinal disorder [Unknown]
  - Gastrointestinal haemorrhage [Unknown]
  - Angina pectoris [Unknown]
  - Haemorrhage [Unknown]
  - Haematocrit decreased [Unknown]
  - Haemoglobin decreased [Unknown]
